FAERS Safety Report 10412722 (Version 3)
Quarter: 2015Q2

REPORT INFORMATION
  Report Type: Spontaneous
  Country: US (occurrence: US)
  Receive Date: 20140827
  Receipt Date: 20150424
  Transmission Date: 20150821
  Serious: Yes (Hospitalization, Disabling, Other)
  Sender: FDA-Public Use
  Company Number: US-PFIZER INC-2014235254

PATIENT
  Age: 44 Year
  Sex: Male

DRUGS (7)
  1. VIAGRA [Suspect]
     Active Substance: SILDENAFIL CITRATE
     Dosage: 100 MG, UNK
  2. PERCOCET [Concomitant]
     Active Substance: ACETAMINOPHEN\OXYCODONE HYDROCHLORIDE
     Indication: PAIN
     Dosage: UNK
  3. SIMVASTATIN. [Concomitant]
     Active Substance: SIMVASTATIN
     Dosage: UNK
  4. VIAGRA [Suspect]
     Active Substance: SILDENAFIL CITRATE
     Dosage: 20 MG, UNK
  5. MULTIVITAMINS [Concomitant]
     Active Substance: VITAMINS
     Dosage: UNK
  6. VIAGRA [Suspect]
     Active Substance: SILDENAFIL CITRATE
     Dosage: ^8 MONTHLY^
     Dates: start: 2003, end: 2008
  7. VICODIN [Concomitant]
     Active Substance: ACETAMINOPHEN\HYDROCODONE BITARTRATE
     Dosage: UNK
     Dates: start: 1998

REACTIONS (8)
  - Osteoarthritis [Unknown]
  - Necrosis [Unknown]
  - Lymphoedema [Unknown]
  - Tibia fracture [Unknown]
  - Fibula fracture [Unknown]
  - Compression fracture [Unknown]
  - Intervertebral disc protrusion [Unknown]
  - Spinal column stenosis [Unknown]

NARRATIVE: CASE EVENT DATE: 2000
